FAERS Safety Report 15877843 (Version 1)
Quarter: 2019Q1

REPORT INFORMATION
  Report Type: Report from Study
  Country: CA (occurrence: CA)
  Receive Date: 20190128
  Receipt Date: 20190128
  Transmission Date: 20190417
  Serious: Yes (Life-Threatening, Hospitalization, Other)
  Sender: FDA-Public Use
  Company Number: CA-TEVA-2019-CA-1005490

PATIENT
  Age: 43 Year
  Sex: Female

DRUGS (9)
  1. VALPROIC ACID. [Suspect]
     Active Substance: VALPROIC ACID
     Indication: PRODUCT USED FOR UNKNOWN INDICATION
     Route: 065
  2. ZOPICLONE [Concomitant]
     Active Substance: ZOPICLONE
  3. VALPROATE SODIUM. [Concomitant]
     Active Substance: VALPROATE SODIUM
  4. CLOZAPINE. [Suspect]
     Active Substance: CLOZAPINE
     Indication: PSYCHOTIC DISORDER
     Route: 048
  5. CLOZAPINE. [Suspect]
     Active Substance: CLOZAPINE
     Indication: BIPOLAR DISORDER
     Route: 048
  6. OMEGA-3 MINI [Concomitant]
  7. CLOZAPINE. [Suspect]
     Active Substance: CLOZAPINE
     Dosage: 375 MILLIGRAM DAILY;
     Route: 048
  8. MULTIVITAMINE(S) [Concomitant]
     Active Substance: VITAMINS
  9. BIMATOPROST. [Concomitant]
     Active Substance: BIMATOPROST

REACTIONS (9)
  - Pneumonia [Not Recovered/Not Resolved]
  - Haemoglobin decreased [Not Recovered/Not Resolved]
  - Hepatic steatosis [Not Recovered/Not Resolved]
  - White blood cell count increased [Not Recovered/Not Resolved]
  - Lymphocyte count increased [Not Recovered/Not Resolved]
  - Platelet count increased [Not Recovered/Not Resolved]
  - Red blood cell count decreased [Not Recovered/Not Resolved]
  - Somnolence [Not Recovered/Not Resolved]
  - Neutrophil count increased [Not Recovered/Not Resolved]
